FAERS Safety Report 24852326 (Version 3)
Quarter: 2025Q1

REPORT INFORMATION
  Report Type: Spontaneous
  Country: US (occurrence: US)
  Receive Date: 20250116
  Receipt Date: 20250303
  Transmission Date: 20250409
  Serious: No
  Sender: SANOFI AVENTIS
  Company Number: US-SA-2025SA013006

PATIENT
  Age: 53 Year
  Sex: Female

DRUGS (4)
  1. DUPIXENT [Suspect]
     Active Substance: DUPILUMAB
     Indication: Dermatitis atopic
     Route: 058
     Dates: start: 20250109, end: 20250109
  2. DUPIXENT [Suspect]
     Active Substance: DUPILUMAB
     Dosage: 300 MG, QOW
     Route: 058
     Dates: start: 20250123, end: 202502
  3. ATENOLOL [Concomitant]
     Active Substance: ATENOLOL
  4. VERAPAMIL [Concomitant]
     Active Substance: VERAPAMIL HYDROCHLORIDE

REACTIONS (12)
  - Blood pressure systolic increased [Unknown]
  - Heart rate decreased [Unknown]
  - Pyrexia [Unknown]
  - Rhinorrhoea [Unknown]
  - Nasal congestion [Unknown]
  - Eosinophil count increased [Unknown]
  - Injection site nodule [Unknown]
  - Upper respiratory tract infection [Unknown]
  - Back pain [Unknown]
  - Oropharyngeal pain [Unknown]
  - Injection site erythema [Not Recovered/Not Resolved]
  - Myalgia [Unknown]

NARRATIVE: CASE EVENT DATE: 20250101
